FAERS Safety Report 7197735-7 (Version None)
Quarter: 2010Q4

REPORT INFORMATION
  Report Type: 
  Country: None (occurrence: None)
  Receive Date: 20101227
  Receipt Date: 20101215
  Transmission Date: 20110411
  Serious: Yes (Hospitalization)
  Sender: FDA-Public Use
  Company Number: GB-SANOFI-AVENTIS-2010SA075945

PATIENT
  Age: 69 Year
  Sex: Female

DRUGS (15)
  1. OXALIPLATIN [Suspect]
     Indication: COLON CANCER STAGE II
     Route: 042
     Dates: start: 20101126, end: 20101126
  2. CAPECITABINE [Suspect]
     Indication: COLON CANCER STAGE II
     Route: 048
     Dates: start: 20101126, end: 20101129
  3. ALENDRONIC ACID [Concomitant]
  4. BECONASE [Concomitant]
  5. BENDROFLUMETHIAZIDE [Concomitant]
  6. CALCEOS [Concomitant]
  7. CITALOPRAM [Concomitant]
  8. LANSOPRAZOLE [Concomitant]
  9. LISINOPRIL [Concomitant]
  10. PARACETAMOL [Concomitant]
  11. QVAR 40 [Concomitant]
  12. SALBUTAMOL [Concomitant]
  13. SIMVASTATIN [Concomitant]
  14. TRAMADOL HYDROCHLORIDE [Concomitant]
  15. TRAVOPROST [Concomitant]

REACTIONS (6)
  - CEREBROVASCULAR ACCIDENT [None]
  - FATIGUE [None]
  - HEMIPARESIS [None]
  - HEMISENSORY NEGLECT [None]
  - MEMORY IMPAIRMENT [None]
  - NEUROPATHY PERIPHERAL [None]
